FAERS Safety Report 8525772-6 (Version None)
Quarter: 2012Q3

REPORT INFORMATION
  Report Type: 
  Country: None (occurrence: None)
  Receive Date: 20120720
  Receipt Date: 20120711
  Transmission Date: 20120928
  Serious: Yes (Hospitalization, Disabling, Other)
  Sender: FDA-Public Use
  Company Number: US-009507513-1203USA03355

PATIENT

DRUGS (7)
  1. FOSAMAX [Suspect]
     Indication: OSTEOPENIA
  2. COZAAR [Concomitant]
     Dosage: 50 MG, BID
     Route: 048
  3. PREMARIN [Concomitant]
     Indication: POSTMENOPAUSE
     Route: 048
     Dates: start: 19880101, end: 20050101
  4. FOSAMAX [Suspect]
     Indication: OSTEOPOROSIS
     Dosage: 10 MG, UNK
     Route: 048
     Dates: start: 19990830, end: 20010326
  5. MK-0152 [Concomitant]
     Dosage: 12.5 MG, UNK
     Route: 048
  6. FOSAMAX [Suspect]
     Indication: BONE DENSITY DECREASED
     Dosage: 70 MG, UNK
     Route: 048
     Dates: start: 20080201, end: 20110701
  7. FOSAMAX [Suspect]
     Dosage: 70 MG, QW
     Route: 048
     Dates: start: 20010326, end: 20091001

REACTIONS (40)
  - LOW TURNOVER OSTEOPATHY [None]
  - DIABETES MELLITUS [None]
  - LIMB INJURY [None]
  - SKIN LESION [None]
  - ARTHROPATHY [None]
  - FALL [None]
  - HEAD INJURY [None]
  - HIP FRACTURE [None]
  - ROAD TRAFFIC ACCIDENT [None]
  - CEREBRAL SMALL VESSEL ISCHAEMIC DISEASE [None]
  - DIARRHOEA [None]
  - GASTROOESOPHAGEAL REFLUX DISEASE [None]
  - CEREBRAL INFARCTION [None]
  - NEPHROLITHIASIS [None]
  - UPPER RESPIRATORY TRACT INFECTION [None]
  - NASOPHARYNGITIS [None]
  - CHRONIC OBSTRUCTIVE PULMONARY DISEASE [None]
  - CARDIOMEGALY [None]
  - EUSTACHIAN TUBE DYSFUNCTION [None]
  - STRESS FRACTURE [None]
  - CATARACT [None]
  - CONTUSION [None]
  - ASTHMA [None]
  - ATROPHIC VULVOVAGINITIS [None]
  - PHARYNGITIS STREPTOCOCCAL [None]
  - TYMPANIC MEMBRANE PERFORATION [None]
  - NODULE [None]
  - NAUSEA [None]
  - EYE INFECTION [None]
  - DIZZINESS [None]
  - SKIN PAPILLOMA [None]
  - CALCULUS URETERIC [None]
  - GALLBLADDER DISORDER [None]
  - DYSURIA [None]
  - URINARY INCONTINENCE [None]
  - FEMUR FRACTURE [None]
  - INFECTED DERMAL CYST [None]
  - COUGH [None]
  - OSTEOPOROSIS [None]
  - SINUS DISORDER [None]
